FAERS Safety Report 8507971-2 (Version None)
Quarter: 2012Q3

REPORT INFORMATION
  Report Type: 
  Country: None (occurrence: None)
  Receive Date: 20120713
  Receipt Date: 20120709
  Transmission Date: 20120928
  Serious: Yes (Other)
  Sender: FDA-Public Use
  Company Number: JP-009507513-1207JPN001482

PATIENT

DRUGS (14)
  1. [THERAPY UNSPECIFIED] [Concomitant]
     Dosage: DOSAGE IS UNCERTAIN DURING A DAY.
     Route: 048
  2. LANSOPRAZOLE [Concomitant]
     Dosage: DOSAGE IS UNCERTAIN DURING A DAY.
     Route: 048
  3. EPLERENONE [Concomitant]
     Dosage: DOSAGE IS UNCERTAIN DURING A DAY.
     Route: 048
  4. SUGAMMADEX SODIUM [Suspect]
     Route: 042
     Dates: start: 20120629, end: 20120629
  5. OLMESARTAN MEDOXOMIL [Concomitant]
     Dosage: DOSAGE IS UNCERTAIN DURING A DAY.
     Route: 048
  6. MAGLAX (MAGNESIUM OXIDE) [Concomitant]
     Dosage: DOSAGE IS UNCERTAIN DURING A DAY.
     Route: 048
  7. SIGMART [Concomitant]
     Dosage: DOSAGE IS UNCERTAIN DURING A DAY.
     Route: 065
     Dates: start: 20120629, end: 20120629
  8. LASIX [Concomitant]
     Dosage: DOSAGE IS UNCERTAIN DURING A DAY.
     Route: 048
  9. NICARDIPINE HCL [Concomitant]
     Dosage: DOSAGE IS UNCERTAIN DURING A DAY.
     Route: 065
     Dates: start: 20120629, end: 20120629
  10. ATELEC [Concomitant]
     Dosage: DOSAGE IS UNCERTAIN DURING A DAY.
     Route: 048
  11. LIPITOR [Concomitant]
     Dosage: DOSAGE IS UNCERTAIN DURING A DAY.
     Route: 048
  12. DOPAMINE HYDROCHLORIDE [Concomitant]
     Dosage: DOSAGE IS UNCERTAIN DURING A DAY.
     Route: 065
     Dates: start: 20120629, end: 20120629
  13. HEPARIN SODIUM [Concomitant]
     Dosage: DOSAGE IS UNCERTAIN DURING A DAY.
     Route: 065
     Dates: start: 20120629, end: 20120629
  14. ALPROSTADIL [Concomitant]
     Dosage: DOSAGE IS UNCERTAIN DURING A DAY.
     Route: 065
     Dates: start: 20120629, end: 20120629

REACTIONS (3)
  - CARDIAC ARREST [None]
  - ERYTHEMA [None]
  - URTICARIA [None]
